FAERS Safety Report 8108249-1 (Version None)
Quarter: 2012Q1

REPORT INFORMATION
  Report Type: 
  Country: None (occurrence: None)
  Receive Date: 20120202
  Receipt Date: 20120120
  Transmission Date: 20120608
  Serious: Yes (Death, Hospitalization)
  Sender: FDA-Public Use
  Company Number: US-JNJFOC-20120100400

PATIENT
  Sex: Male
  Weight: 65.8 kg

DRUGS (19)
  1. REMICADE [Suspect]
     Dosage: LAST DOSE
     Route: 042
     Dates: start: 20101122, end: 20101122
  2. PREVACID [Concomitant]
     Route: 065
  3. REMICADE [Suspect]
     Indication: RHEUMATOID ARTHRITIS
     Dosage: 714.0 (UNITS UNSPECIFIED)
     Route: 042
  4. AMIODARONE HCL [Concomitant]
     Route: 065
  5. ONDANSETRON HCL [Concomitant]
     Dosage: PRN
     Route: 065
  6. ALL OTHER THERAPEUTIC PRODUCTS [Concomitant]
     Route: 061
  7. ASPIRIN [Concomitant]
     Route: 065
  8. FOLIC ACID [Concomitant]
     Route: 065
  9. CALCIUM [Concomitant]
     Route: 065
  10. DULCOLAX [Concomitant]
     Route: 065
  11. HEPARIN [Concomitant]
     Route: 065
  12. LEVOPHED [Concomitant]
     Route: 065
  13. ARTIFICIAL TEARS NOS [Concomitant]
     Route: 065
  14. XENADERM [Concomitant]
     Route: 061
  15. ASPIRIN [Concomitant]
     Route: 065
  16. JEVITY [Concomitant]
     Route: 065
  17. COLACE [Concomitant]
     Route: 065
  18. MILK OF MAGNESIA TAB [Concomitant]
     Route: 065
  19. PLAVIX [Concomitant]
     Dosage: DOSE: 75 (UNITS UNSPECIFIED)
     Route: 065

REACTIONS (6)
  - CARDIAC FAILURE CONGESTIVE [None]
  - ATRIAL FIBRILLATION [None]
  - HYPOTENSION [None]
  - CARDIOGENIC SHOCK [None]
  - ACUTE MYOCARDIAL INFARCTION [None]
  - CORONARY ARTERY OCCLUSION [None]
